FAERS Safety Report 19878696 (Version 1)
Quarter: 2021Q3

REPORT INFORMATION
  Report Type: Report from Study
  Country: BR (occurrence: BR)
  Receive Date: 20210924
  Receipt Date: 20210924
  Transmission Date: 20211014
  Serious: Yes (Other)
  Sender: FDA-Public Use
  Company Number: NVSC2021BR024418

PATIENT
  Age: 55 Year
  Sex: Female

DRUGS (6)
  1. COSENTYX [Suspect]
     Active Substance: SECUKINUMAB
     Dosage: UNK
     Route: 065
     Dates: start: 20210819
  2. COSENTYX [Suspect]
     Active Substance: SECUKINUMAB
     Indication: PSORIATIC ARTHROPATHY
     Dosage: 300 MG, UNKNOWN
     Route: 065
     Dates: start: 20201218
  3. COSENTYX [Suspect]
     Active Substance: SECUKINUMAB
     Dosage: UNK UNK, UNKNOWN
     Route: 065
     Dates: start: 20210514
  4. COSENTYX [Suspect]
     Active Substance: SECUKINUMAB
     Dosage: 300 MG, QW(2 PENS)
     Route: 065
     Dates: start: 20201218
  5. COSENTYX [Suspect]
     Active Substance: SECUKINUMAB
     Dosage: UNK
     Route: 065
     Dates: start: 20210723
  6. COSENTYX [Suspect]
     Active Substance: SECUKINUMAB
     Dosage: UNK
     Route: 065
     Dates: start: 20210813

REACTIONS (25)
  - Pharyngeal swelling [Recovering/Resolving]
  - Dyspnoea [Recovering/Resolving]
  - Product storage error [Unknown]
  - Nasal congestion [Recovering/Resolving]
  - Hypersensitivity [Unknown]
  - Memory impairment [Recovering/Resolving]
  - Glucose urine present [Unknown]
  - Malaise [Recovered/Resolved]
  - COVID-19 [Recovering/Resolving]
  - Pain [Recovering/Resolving]
  - Anosmia [Recovering/Resolving]
  - Discomfort [Unknown]
  - Asthenia [Unknown]
  - Lung disorder [Recovering/Resolving]
  - Condition aggravated [Recovering/Resolving]
  - Coagulation time prolonged [Unknown]
  - Back pain [Unknown]
  - Headache [Recovering/Resolving]
  - Influenza [Recovering/Resolving]
  - Oropharyngeal pain [Unknown]
  - Fear of injection [Unknown]
  - Ageusia [Recovering/Resolving]
  - Rhinitis allergic [Unknown]
  - COVID-19 [Recovered/Resolved with Sequelae]
  - Inappropriate schedule of product administration [Unknown]

NARRATIVE: CASE EVENT DATE: 20201218
